FAERS Safety Report 26132304 (Version 1)
Quarter: 2025Q4

REPORT INFORMATION
  Report Type: Spontaneous
  Country: EU (occurrence: EU)
  Receive Date: 20251208
  Receipt Date: 20251208
  Transmission Date: 20260117
  Serious: Yes (Life-Threatening, Hospitalization)
  Sender: ELI LILLY AND COMPANY
  Company Number: None

PATIENT
  Age: 0 Day
  Weight: 2.495 kg

DRUGS (12)
  1. FLUOXETINE HYDROCHLORIDE [Suspect]
     Active Substance: FLUOXETINE HYDROCHLORIDE
     Indication: Burnout syndrome
     Dosage: 20 MG, BID
     Route: 064
     Dates: start: 20250220, end: 202507
  2. FLUOXETINE HYDROCHLORIDE [Suspect]
     Active Substance: FLUOXETINE HYDROCHLORIDE
     Indication: Burnout syndrome
     Dosage: 20 MG, BID
     Route: 064
     Dates: start: 20250220, end: 202507
  3. FLUOXETINE HYDROCHLORIDE [Suspect]
     Active Substance: FLUOXETINE HYDROCHLORIDE
     Dosage: 20 MG, DAILY
     Route: 064
     Dates: start: 202508, end: 20251024
  4. FLUOXETINE HYDROCHLORIDE [Suspect]
     Active Substance: FLUOXETINE HYDROCHLORIDE
     Dosage: 20 MG, DAILY
     Route: 064
     Dates: start: 202508, end: 20251024
  5. NICARDIPINE HYDROCHLORIDE [Suspect]
     Active Substance: NICARDIPINE HYDROCHLORIDE
     Indication: Hypertension
     Dosage: 50 MG, DAILY
     Route: 064
     Dates: start: 20250506, end: 20250902
  6. NICARDIPINE HYDROCHLORIDE [Suspect]
     Active Substance: NICARDIPINE HYDROCHLORIDE
     Indication: Hypertension
     Dosage: 50 MG, DAILY
     Route: 064
     Dates: start: 20250506, end: 20250902
  7. NICARDIPINE HYDROCHLORIDE [Suspect]
     Active Substance: NICARDIPINE HYDROCHLORIDE
     Dosage: 50 MG, BID
     Route: 064
     Dates: start: 20250902, end: 20251024
  8. NICARDIPINE HYDROCHLORIDE [Suspect]
     Active Substance: NICARDIPINE HYDROCHLORIDE
     Dosage: 50 MG, BID
     Route: 064
     Dates: start: 20250902, end: 20251024
  9. TRANDATE [Suspect]
     Active Substance: LABETALOL HYDROCHLORIDE
     Indication: Hypertension
     Dosage: 200 MG, UNKNOWN
     Route: 064
     Dates: start: 20251006, end: 20251024
  10. TRANDATE [Suspect]
     Active Substance: LABETALOL HYDROCHLORIDE
     Indication: Hypertension
     Dosage: 200 MG, UNKNOWN
     Route: 064
     Dates: start: 20251006, end: 20251024
  11. SPIRONOLACTONE [Concomitant]
     Active Substance: SPIRONOLACTONE
     Indication: Hypertension
     Dosage: 50 MG, DAILY
     Route: 064
     Dates: start: 20250220, end: 20250506
  12. SPIRONOLACTONE [Concomitant]
     Active Substance: SPIRONOLACTONE
     Indication: Hypertension
     Dosage: 50 MG, DAILY
     Route: 064
     Dates: start: 20250220, end: 20250506

REACTIONS (3)
  - Foetal heart rate disorder [Recovered/Resolved]
  - Neonatal respiratory distress [Recovered/Resolved]
  - Foetal exposure during pregnancy [Recovered/Resolved]

NARRATIVE: CASE EVENT DATE: 20251024
